FAERS Safety Report 15958203 (Version 2)
Quarter: 2019Q1

REPORT INFORMATION
  Report Type: Spontaneous
  Country: US (occurrence: US)
  Receive Date: 20190213
  Receipt Date: 20190228
  Transmission Date: 20190417
  Serious: No
  Sender: FDA-Public Use
  Company Number: US-BAYER-2019-027687

PATIENT
  Sex: Male

DRUGS (2)
  1. ALIQOPA [Suspect]
     Active Substance: COPANLISIB
     Indication: HORMONE-REFRACTORY PROSTATE CANCER
     Dosage: UNK
     Dates: start: 20190221
  2. ALIQOPA [Suspect]
     Active Substance: COPANLISIB
     Indication: METASTASIS

REACTIONS (2)
  - Product use in unapproved indication [None]
  - Off label use [None]
